FAERS Safety Report 4921162-3 (Version None)
Quarter: 2006Q1

REPORT INFORMATION
  Report Type: 
  Country: None (occurrence: None)
  Receive Date: 20060217
  Receipt Date: 20060208
  Transmission Date: 20060701
  Serious: Yes (Hospitalization)
  Sender: FDA-Public Use
  Company Number: 2006-02-0240

PATIENT
  Age: 33 Year
  Sex: Female

DRUGS (3)
  1. CLARITIN [Suspect]
     Dosage: 10 MG QD ORAL
     Route: 048
  2. SYMBICORT (BUDESONIDE/FORMOTEROL) POWDER FOR INHALATION [Suspect]
     Indication: ASTHMA
     Dosage: BID INHALATION
     Route: 055
  3. LOMUSOL NASAL SOLUTION [Suspect]
     Dosage: BID NAS AER SPRAY
     Route: 045
     Dates: start: 20050801, end: 20051001

REACTIONS (7)
  - CUTANEOUS VASCULITIS [None]
  - EOSINOPHILIA [None]
  - EPIDERMAL NECROSIS [None]
  - LEUKOCYTOCLASTIC VASCULITIS [None]
  - PAIN [None]
  - PRURITUS [None]
  - RASH VESICULAR [None]
